FAERS Safety Report 24595134 (Version 1)
Quarter: 2024Q4

REPORT INFORMATION
  Report Type: Spontaneous
  Country: US (occurrence: None)
  Receive Date: 20241108
  Receipt Date: 20241108
  Transmission Date: 20250115
  Serious: Yes (Death)
  Sender: Public
  Company Number: None

PATIENT
  Age: 80 Year
  Sex: Male

DRUGS (1)
  1. LECANEMAB [Suspect]
     Active Substance: LECANEMAB

REACTIONS (7)
  - Urinary incontinence [None]
  - Amyloid related imaging abnormality-microhaemorrhages and haemosiderin deposits [None]
  - Seizure [None]
  - White blood cell count increased [None]
  - Pyrexia [None]
  - Oedema [None]
  - Confusional state [None]
